FAERS Safety Report 22332695 (Version 1)
Quarter: 2023Q2

REPORT INFORMATION
  Report Type: Spontaneous
  Country: JP (occurrence: JP)
  Receive Date: 20230517
  Receipt Date: 20230517
  Transmission Date: 20230722
  Serious: Yes (Death, Other)
  Sender: FDA-Public Use
  Company Number: JP-MSD-M2023-18470

PATIENT
  Age: 7 Decade
  Sex: Male

DRUGS (1)
  1. ZERBAXA [Suspect]
     Active Substance: CEFTOLOZANE SULFATE\TAZOBACTAM SODIUM
     Indication: Pseudomonal sepsis
     Dosage: UNK
     Route: 041

REACTIONS (1)
  - T-cell lymphoma [Fatal]

NARRATIVE: CASE EVENT DATE: 20230401
